FAERS Safety Report 8507643 (Version 2)
Quarter: 2013Q1

REPORT INFORMATION
  Report Type: Spontaneous
  Country: US (occurrence: US)
  Receive Date: 20120412
  Receipt Date: 20130326
  Transmission Date: 20140127
  Serious: No
  Sender: FDA-Public Use
  Company Number: US-ASTRAZENECA-2011SE17694

PATIENT
  Age: 72 Year
  Sex: Female

DRUGS (2)
  1. NEXIUM [Suspect]
     Route: 048
  2. ZESTRIL [Suspect]
     Route: 048

REACTIONS (16)
  - Tongue coated [Unknown]
  - Contusion [Unknown]
  - Asthenia [Unknown]
  - Sinusitis [Unknown]
  - Increased tendency to bruise [Unknown]
  - Hernia [Unknown]
  - Musculoskeletal discomfort [Unknown]
  - Urinary tract infection [Unknown]
  - Candida infection [Unknown]
  - Nasopharyngitis [Unknown]
  - Dyspepsia [Unknown]
  - Expired drug administered [Unknown]
  - Stress [Unknown]
  - Dry mouth [Unknown]
  - Alopecia [Unknown]
  - Intentional drug misuse [Unknown]
